FAERS Safety Report 25226574 (Version 1)
Quarter: 2025Q2

REPORT INFORMATION
  Report Type: Spontaneous
  Country: IN (occurrence: IN)
  Receive Date: 20250422
  Receipt Date: 20250422
  Transmission Date: 20250716
  Serious: Yes (Other)
  Sender: Alora Pharma
  Company Number: IN-AVION PHARMACEUTICALS-2025ALO02157

PATIENT
  Sex: Female

DRUGS (10)
  1. PONSTEL [Suspect]
     Active Substance: MEFENAMIC ACID
     Indication: Abdominal pain
     Route: 048
  2. PONSTEL [Suspect]
     Active Substance: MEFENAMIC ACID
     Route: 048
  3. PONSTEL [Suspect]
     Active Substance: MEFENAMIC ACID
     Route: 048
  4. DICYCLOMINE [Suspect]
     Active Substance: DICYCLOMINE HYDROCHLORIDE
     Indication: Abdominal pain
     Route: 048
  5. DICYCLOMINE [Suspect]
     Active Substance: DICYCLOMINE HYDROCHLORIDE
     Route: 048
  6. DICYCLOMINE [Suspect]
     Active Substance: DICYCLOMINE HYDROCHLORIDE
     Route: 048
  7. TRAMADOL [Suspect]
     Active Substance: TRAMADOL
     Indication: Abdominal pain
     Route: 048
  8. TRAMADOL [Suspect]
     Active Substance: TRAMADOL
     Dosage: 50 MG [3-4 TABETS]
     Route: 048
  9. TRAMADOL [Suspect]
     Active Substance: TRAMADOL
     Route: 048
  10. TRAMADOL [Suspect]
     Active Substance: TRAMADOL
     Dosage: 200 MG, 1X/DAY; TAPERED
     Route: 048

REACTIONS (3)
  - Dependence [Recovered/Resolved]
  - Drug abuse [None]
  - Drug withdrawal syndrome [Recovered/Resolved]
